APPROVED DRUG PRODUCT: PROGESTERONE
Active Ingredient: PROGESTERONE
Strength: 50MG/ML
Dosage Form/Route: INJECTABLE;INJECTION
Application: A210965 | Product #001 | TE Code: AO
Applicant: EUGIA PHARMA SPECIALITIES LTD
Approved: Dec 6, 2018 | RLD: No | RS: Yes | Type: RX